FAERS Safety Report 20952323 (Version 1)
Quarter: 2022Q2

REPORT INFORMATION
  Report Type: Spontaneous
  Country: US (occurrence: US)
  Receive Date: 20220613
  Receipt Date: 20220613
  Transmission Date: 20220720
  Serious: Yes (Other)
  Sender: FDA-Public Use
  Company Number: US-SAGENT PHARMACEUTICALS-2022SAG001242

PATIENT
  Age: 12 Month
  Sex: Male

DRUGS (4)
  1. DOXORUBICIN HYDROCHLORIDE [Suspect]
     Active Substance: DOXORUBICIN HYDROCHLORIDE
     Indication: Clear cell sarcoma of the kidney
     Dosage: UNK
  2. CYCLOPHOSPHAMIDE [Suspect]
     Active Substance: CYCLOPHOSPHAMIDE
     Indication: Clear cell sarcoma of the kidney
     Dosage: UNK
  3. ETOPOSIDE [Suspect]
     Active Substance: ETOPOSIDE
     Indication: Clear cell sarcoma of the kidney
     Dosage: UNK
  4. VINCRISTINE [Suspect]
     Active Substance: VINCRISTINE
     Indication: Clear cell sarcoma of the kidney
     Dosage: UNK

REACTIONS (8)
  - Pneumatosis intestinalis [Unknown]
  - Enterocolitis [Unknown]
  - Feeding disorder [Recovered/Resolved]
  - Hypogammaglobulinaemia [Unknown]
  - Selective eating disorder [Recovered/Resolved]
  - Speech disorder developmental [Unknown]
  - Carnitine deficiency [Recovered/Resolved]
  - Hypoglycaemia [Recovered/Resolved]
